FAERS Safety Report 23165925 (Version 2)
Quarter: 2023Q4

REPORT INFORMATION
  Report Type: Report from Study
  Country: AR (occurrence: AR)
  Receive Date: 20231109
  Receipt Date: 20231117
  Transmission Date: 20240109
  Serious: Yes (Death, Hospitalization)
  Sender: FDA-Public Use
  Company Number: AR-002147023-NVSC2023AR229158

PATIENT
  Age: 72 Year
  Sex: Female

DRUGS (6)
  1. KISQALI [Suspect]
     Active Substance: RIBOCICLIB
     Indication: Breast cancer metastatic
     Dosage: 1200 MG, QD
     Route: 048
     Dates: start: 20230925
  2. KISQALI [Suspect]
     Active Substance: RIBOCICLIB
     Dosage: UNK, Q12H, (3 OF 200MG)
     Route: 048
  3. LEVOTHYROXINE [Concomitant]
     Active Substance: LEVOTHYROXINE
     Indication: Product used for unknown indication
     Dosage: 75 MG, (T4)
     Route: 065
  4. ENALAPRIL MALEATE [Concomitant]
     Active Substance: ENALAPRIL MALEATE
     Indication: Product used for unknown indication
     Dosage: 5 MG
     Route: 065
  5. TRAMADOL [Concomitant]
     Active Substance: TRAMADOL\TRAMADOL HYDROCHLORIDE
     Indication: Product used for unknown indication
     Dosage: UNK
     Route: 065
  6. TAFIROL [Concomitant]
     Indication: Product used for unknown indication
     Dosage: UNK
     Route: 065

REACTIONS (12)
  - Respiratory rate increased [Fatal]
  - Musculoskeletal chest pain [Fatal]
  - Asthenia [Fatal]
  - Obstructive airways disorder [Fatal]
  - Inflammation [Fatal]
  - Lymphangiosis carcinomatosa [Fatal]
  - Fatigue [Fatal]
  - Drug ineffective [Fatal]
  - Off label use [Fatal]
  - Epistaxis [Unknown]
  - White blood cell count decreased [Unknown]
  - Platelet count decreased [Unknown]

NARRATIVE: CASE EVENT DATE: 20231018
